FAERS Safety Report 5591426-1 (Version None)
Quarter: 2008Q1

REPORT INFORMATION
  Report Type: 
  Country: None (occurrence: None)
  Receive Date: 20080111
  Receipt Date: 20080107
  Transmission Date: 20080703
  Serious: Yes (Disabling)
  Sender: FDA-Public Use
  Company Number: 18037

PATIENT
  Age: 55 Year
  Sex: Female
  Weight: 58.9676 kg

DRUGS (10)
  1. LEUCOVORIN [Suspect]
     Indication: COLON CANCER
  2. OXALIPLATIN [Suspect]
     Indication: COLON CANCER
     Dosage: 140 MG FORTNIGHTLY IV
     Route: 042
     Dates: start: 20060701, end: 20061201
  3. FLUOROURACIL [Suspect]
     Indication: COLON CANCER
  4. PREMPRO [Concomitant]
  5. PROPRANOLOL HYDROCHLORIDE [Concomitant]
  6. DIPHENHYDRAMINE HYDROCHLORIDE [Concomitant]
  7. DEXAMETHASONE TAB [Concomitant]
  8. PEGFILGRASTIM [Concomitant]
  9. DARBEPOETIN ALFA [Concomitant]
  10. ONDANSETRON HYDROCHLORIDE [Concomitant]

REACTIONS (2)
  - ACTIVITIES OF DAILY LIVING IMPAIRED [None]
  - NEUROPATHY PERIPHERAL [None]
